FAERS Safety Report 6730567-X (Version None)
Quarter: 2010Q2

REPORT INFORMATION
  Report Type: 
  Country: None (occurrence: None)
  Receive Date: 20100514
  Receipt Date: 20100505
  Transmission Date: 20101027
  Serious: Yes (Other)
  Sender: FDA-Public Use
  Company Number: 2010US001548

PATIENT
  Age: 68 Year
  Sex: Female

DRUGS (3)
  1. PROGRAF [Suspect]
     Indication: PROPHYLAXIS AGAINST GRAFT VERSUS HOST DISEASE
     Dosage: SEE IMAGE
     Route: 048
     Dates: end: 20080101
  2. PROGRAF [Suspect]
     Indication: PROPHYLAXIS AGAINST GRAFT VERSUS HOST DISEASE
     Dosage: SEE IMAGE
     Route: 048
     Dates: start: 20080101
  3. MYCOPHENOLATE MOFETIL [Suspect]
     Indication: DRUG USE FOR UNKNOWN INDICATION
     Dosage: 250 MG, BID,

REACTIONS (4)
  - GRAFT VERSUS HOST DISEASE [None]
  - HYPOKINESIA [None]
  - MENTAL IMPAIRMENT [None]
  - RASH [None]
